FAERS Safety Report 16168339 (Version 1)
Quarter: 2019Q2

REPORT INFORMATION
  Report Type: Spontaneous
  Country: US (occurrence: US)
  Receive Date: 20190405
  Receipt Date: 20190405
  Transmission Date: 20190711
  Serious: No
  Sender: FDA-Public Use
  Company Number: None

PATIENT
  Age: 71 Year
  Sex: Male
  Weight: 65.25 kg

DRUGS (16)
  1. GLUCOSAMINE CHONDROITIN [Concomitant]
     Active Substance: CHONDROITIN SULFATE (BOVINE)\GLUCOSAMINE HYDROCHLORIDE
  2. COLLAGEN [Concomitant]
     Active Substance: COLLAGEN
  3. BENADRYL [Concomitant]
     Active Substance: DIPHENHYDRAMINE HYDROCHLORIDE
  4. FISH OIL [Concomitant]
     Active Substance: FISH OIL
  5. MAGNESIUM [Concomitant]
     Active Substance: MAGNESIUM
  6. METAMUCIL [Concomitant]
     Active Substance: PLANTAGO SEED
  7. MULTIVITAMIN [Concomitant]
     Active Substance: VITAMINS
  8. REPATHA [Suspect]
     Active Substance: EVOLOCUMAB
     Indication: LOW DENSITY LIPOPROTEIN INCREASED
     Dosage: ?          QUANTITY:1 INJECTION(S);OTHER FREQUENCY:EVERY TWO WEEKS;?
     Route: 030
  9. METOPROLOL. [Concomitant]
     Active Substance: METOPROLOL
  10. BABY ASPIRIN [Concomitant]
     Active Substance: ASPIRIN
  11. IBUPROFEN. [Concomitant]
     Active Substance: IBUPROFEN
  12. MYRALAX [Concomitant]
  13. CENICOT [Concomitant]
  14. LISINOPRIL. [Concomitant]
     Active Substance: LISINOPRIL
  15. CITRAZINE [Concomitant]
  16. FLONASE [Concomitant]
     Active Substance: FLUTICASONE PROPIONATE

REACTIONS (3)
  - Confusional state [None]
  - Anxiety [None]
  - Amnesia [None]

NARRATIVE: CASE EVENT DATE: 20180315
